FAERS Safety Report 5152025-9 (Version None)
Quarter: 2006Q4

REPORT INFORMATION
  Report Type: 
  Country: None (occurrence: None)
  Receive Date: 20061116
  Receipt Date: 20041220
  Transmission Date: 20070319
  Serious: Yes (Death, Life-Threatening, Hospitalization)
  Sender: FDA-Public Use
  Company Number: PHRM2004FR03720

PATIENT
  Age: 78 Year
  Sex: Male
  Weight: 66.8 kg

DRUGS (4)
  1. PRAZEPAM [Concomitant]
     Dosage: 1 DF, QD
     Route: 048
  2. VOLTAREN [Suspect]
     Indication: SCIATICA
     Dosage: 10 X 50MG IN 1 WEEK
     Route: 048
     Dates: start: 20041201, end: 20041201
  3. ASPIRIN [Concomitant]
     Dosage: 75 MG, QD
     Route: 048
  4. CORDARONE [Concomitant]
     Indication: ATRIAL FIBRILLATION

REACTIONS (7)
  - BLOOD CREATININE INCREASED [None]
  - BLOOD UREA INCREASED [None]
  - DIALYSIS [None]
  - PAIN IN EXTREMITY [None]
  - PULMONARY OEDEMA [None]
  - RENAL FAILURE [None]
  - RHABDOMYOLYSIS [None]
